FAERS Safety Report 6375818-9 (Version None)
Quarter: 2009Q3

REPORT INFORMATION
  Report Type: 
  Country: None (occurrence: None)
  Receive Date: 20090924
  Receipt Date: 20090917
  Transmission Date: 20100115
  Serious: Yes (Hospitalization)
  Sender: FDA-Public Use
  Company Number: US-B.I. PHARMACEUTICALS,INC./RIDGEFIELD-2009-BP-10974BP

PATIENT
  Age: 89 Year
  Sex: Female

DRUGS (1)
  1. FLOMAX [Suspect]
     Indication: BLADDER NEOPLASM SURGERY
     Dosage: 0.4 MG
     Route: 048
     Dates: start: 20070101

REACTIONS (1)
  - RECTAL PROLAPSE [None]
